FAERS Safety Report 9202233 (Version 2)
Quarter: 2013Q2

REPORT INFORMATION
  Report Type: Spontaneous
  Country: US (occurrence: None)
  Receive Date: 20130326
  Receipt Date: 20130412
  Transmission Date: 20140414
  Serious: Yes (Other)
  Sender: FDA-Public Use
  Company Number: 2013P1003326

PATIENT
  Sex: 0

DRUGS (1)
  1. MEPERIDINE HCL [Suspect]

REACTIONS (3)
  - Swelling face [None]
  - Pyrexia [None]
  - Product quality issue [None]
